FAERS Safety Report 12208224 (Version 1)
Quarter: 2016Q1

REPORT INFORMATION
  Report Type: Spontaneous
  Country: GB (occurrence: GB)
  Receive Date: 20160324
  Receipt Date: 20160324
  Transmission Date: 20160526
  Serious: Yes (Other)
  Sender: FDA-Public Use
  Company Number: GB-JNJFOC-20160319435

PATIENT
  Sex: Male

DRUGS (1)
  1. NIZORAL [Suspect]
     Active Substance: KETOCONAZOLE
     Indication: PSORIASIS
     Route: 061

REACTIONS (4)
  - Vasculitis [Unknown]
  - Pain [Unknown]
  - Product use issue [Unknown]
  - Off label use [Unknown]
